FAERS Safety Report 9720591 (Version 2)
Quarter: 2013Q4

REPORT INFORMATION
  Report Type: Spontaneous
  Country: FR (occurrence: FR)
  Receive Date: 20131129
  Receipt Date: 20131129
  Transmission Date: 20140711
  Serious: Yes (Other)
  Sender: FDA-Public Use
  Company Number: PHHY2013FR097881

PATIENT
  Age: 65 Year
  Sex: Female

DRUGS (8)
  1. TASIGNA [Suspect]
     Indication: CHRONIC MYELOID LEUKAEMIA
     Dosage: 3 DF, DAILY
     Route: 048
     Dates: start: 201101
  2. RIVOTRIL [Suspect]
     Indication: INSOMNIA
     Dosage: 3-5 DRP AT BEDTIME, DAILY
     Route: 048
     Dates: end: 20130828
  3. RIVOTRIL [Suspect]
     Dosage: UNK
  4. CRESTOR [Concomitant]
  5. PREVISCAN [Concomitant]
  6. PREDNISOLONE [Concomitant]
  7. AMLOR [Concomitant]
  8. NORDAZ [Concomitant]

REACTIONS (5)
  - VIth nerve paralysis [Unknown]
  - Visual field defect [Unknown]
  - Diplopia [Unknown]
  - Hypertension [Recovered/Resolved]
  - Insomnia [Unknown]
